FAERS Safety Report 20478319 (Version 2)
Quarter: 2022Q2

REPORT INFORMATION
  Report Type: Report from Study
  Country: GB (occurrence: GB)
  Receive Date: 20220216
  Receipt Date: 20220413
  Transmission Date: 20220721
  Serious: Yes (Hospitalization, Other)
  Sender: FDA-Public Use
  Company Number: GB-JNJFOC-20220153671

PATIENT

DRUGS (2)
  1. PREDNISOLONE [Suspect]
     Active Substance: PREDNISOLONE
     Indication: Product used for unknown indication
     Dosage: 10 MG, QD (UNIT DOSE -10)
     Route: 048
     Dates: start: 20200401, end: 20220121
  2. ABIRATERONE ACETATE [Suspect]
     Active Substance: ABIRATERONE ACETATE
     Indication: Prostate cancer metastatic
     Dosage: 1000 MG, QD
     Route: 048
     Dates: start: 20200401, end: 20220121

REACTIONS (6)
  - Hypomagnesaemia [Recovering/Resolving]
  - Asthenia [Recovering/Resolving]
  - COVID-19 pneumonia [Recovering/Resolving]
  - Hypokalaemia [Recovering/Resolving]
  - Hypokalaemia [Not Recovered/Not Resolved]
  - Confusional state [Recovering/Resolving]

NARRATIVE: CASE EVENT DATE: 20220121
